FAERS Safety Report 7239343-5 (Version None)
Quarter: 2011Q1

REPORT INFORMATION
  Report Type: 
  Country: None (occurrence: None)
  Receive Date: 20110121
  Receipt Date: 20110119
  Transmission Date: 20110831
  Serious: Yes (Hospitalization)
  Sender: FDA-Public Use
  Company Number: US-PFIZER INC-US-WYE-H17384110

PATIENT
  Sex: Female
  Weight: 108 kg

DRUGS (9)
  1. XANAX [Concomitant]
     Dosage: UNK
     Route: 065
  2. PRISTIQ [Suspect]
     Indication: PAIN
  3. FENTANYL [Concomitant]
  4. ALDACTONE [Concomitant]
     Dosage: UNK
     Route: 065
  5. LYRICA [Suspect]
     Dosage: 300 MG, 1X/DAY
     Route: 048
     Dates: start: 20090101, end: 20100819
  6. LYRICA [Suspect]
     Dosage: 200 MG, 1X/DAY
     Route: 048
     Dates: start: 20100820
  7. WELLBUTRIN [Concomitant]
     Route: 065
  8. PRISTIQ [Suspect]
     Indication: FIBROMYALGIA
     Dosage: 50 MG, 2X/DAY
     Route: 048
     Dates: start: 20090101
  9. ACETAMINOPHEN AND OXYCODONE HCL [Concomitant]
     Route: 065

REACTIONS (8)
  - MIGRAINE [None]
  - SPEECH DISORDER [None]
  - MALAISE [None]
  - ROAD TRAFFIC ACCIDENT [None]
  - CONFUSIONAL STATE [None]
  - PAIN [None]
  - HEAD INJURY [None]
  - VOMITING [None]
